FAERS Safety Report 7311757-4 (Version None)
Quarter: 2011Q1

REPORT INFORMATION
  Report Type: 
  Country: None (occurrence: None)
  Receive Date: 20110224
  Receipt Date: 20110208
  Transmission Date: 20110831
  Serious: Yes (Hospitalization, Other)
  Sender: FDA-Public Use
  Company Number: US-BAYER-2011-017178

PATIENT
  Sex: Female
  Weight: 95.238 kg

DRUGS (4)
  1. YAZ [Suspect]
     Indication: PRODUCT USED FOR UNKNOWN INDICATION
     Dosage: UNK
     Dates: start: 20000101, end: 20040101
  2. YASMIN [Suspect]
     Dosage: UNK
     Dates: start: 20050101, end: 20060101
  3. YASMIN [Suspect]
     Indication: PRODUCT USED FOR UNKNOWN INDICATION
     Dosage: UNK
     Dates: start: 20000101, end: 20040101
  4. YAZ [Suspect]
     Dosage: UNK
     Dates: start: 20050101, end: 20060101

REACTIONS (7)
  - CHOLELITHIASIS [None]
  - VOMITING [None]
  - NAUSEA [None]
  - DYSPEPSIA [None]
  - PAIN [None]
  - ABDOMINAL PAIN UPPER [None]
  - DIARRHOEA [None]
